FAERS Safety Report 10106071 (Version 2)
Quarter: 2014Q3

REPORT INFORMATION
  Report Type: Other
  Country: US (occurrence: US)
  Receive Date: 20140424
  Receipt Date: 20140702
  Transmission Date: 20150326
  Serious: Yes (Hospitalization, Other)
  Sender: FDA-Public Use
  Company Number: US-GSKPPD-2014GSK001782

PATIENT
  Age: 58 Year
  Sex: Male
  Weight: 119.4 kg

DRUGS (12)
  1. PRINIVIL [Concomitant]
     Active Substance: LISINOPRIL
  2. AVANDAMET [Suspect]
     Active Substance: METFORMIN HYDROCHLORIDE\ROSIGLITAZONE MALEATE
     Indication: DIABETES MELLITUS
     Dosage: 4 MG/1000 MG
     Route: 048
     Dates: start: 20041022, end: 20051221
  3. IMDUR [Concomitant]
     Active Substance: ISOSORBIDE MONONITRATE
  4. LASIX [Concomitant]
     Active Substance: FUROSEMIDE
  5. PRAVACHOL [Concomitant]
     Active Substance: PRAVASTATIN SODIUM
  6. ASPIRIN. [Concomitant]
     Active Substance: ASPIRIN
  7. AGGRENOX [Concomitant]
     Active Substance: ASPIRIN\DIPYRIDAMOLE
  8. ALDACTONE [Concomitant]
     Active Substance: SPIRONOLACTONE
  9. PLAVIX [Concomitant]
     Active Substance: CLOPIDOGREL BISULFATE
  10. LIPITOR [Concomitant]
     Active Substance: ATORVASTATIN CALCIUM
  11. AVANDIA [Suspect]
     Active Substance: ROSIGLITAZONE MALEATE
     Indication: DIABETES MELLITUS
     Route: 048
     Dates: start: 20021015, end: 20070410
  12. ACEON [Concomitant]
     Active Substance: PERINDOPRIL ERBUMINE

REACTIONS (1)
  - Myocardial infarction [Recovered/Resolved]

NARRATIVE: CASE EVENT DATE: 20041129
